FAERS Safety Report 7374914-7 (Version None)
Quarter: 2011Q1

REPORT INFORMATION
  Report Type: 
  Country: None (occurrence: None)
  Receive Date: 20110325
  Receipt Date: 20110317
  Transmission Date: 20110831
  Serious: Yes (Hospitalization)
  Sender: FDA-Public Use
  Company Number: JP-NOVOPROD-325157

PATIENT

DRUGS (2)
  1. LANTUS [Concomitant]
     Dosage: 4 U, QD
     Route: 058
  2. VICTOZA [Suspect]
     Indication: PRODUCT USED FOR UNKNOWN INDICATION
     Dosage: 0.3 MG, QD
     Route: 058
     Dates: start: 20110316, end: 20110317

REACTIONS (1)
  - LOSS OF CONSCIOUSNESS [None]
